FAERS Safety Report 11358567 (Version 1)
Quarter: 2015Q3

REPORT INFORMATION
  Report Type: Spontaneous
  Country: US (occurrence: US)
  Receive Date: 20150803
  Receipt Date: 20150803
  Transmission Date: 20151125
  Serious: No
  Sender: FDA-Public Use
  Company Number: US-ELI_LILLY_AND_COMPANY-US200904005618

PATIENT
  Sex: Male

DRUGS (3)
  1. ZYPREXA [Suspect]
     Active Substance: OLANZAPINE
  2. KLONOPIN [Concomitant]
     Active Substance: CLONAZEPAM
  3. REMERON [Concomitant]
     Active Substance: MIRTAZAPINE

REACTIONS (3)
  - Weight increased [Unknown]
  - Infection parasitic [Unknown]
  - Weight decreased [Unknown]

NARRATIVE: CASE EVENT DATE: 2009
